FAERS Safety Report 7329913-8 (Version None)
Quarter: 2011Q1

REPORT INFORMATION
  Report Type: 
  Country: None (occurrence: None)
  Receive Date: 20110303
  Receipt Date: 20110218
  Transmission Date: 20110831
  Serious: No
  Sender: FDA-Public Use
  Company Number: B0701786A

PATIENT
  Age: 6 Year

DRUGS (1)
  1. RELENZA [Suspect]
     Dosage: 20MG PER DAY
     Route: 055
     Dates: start: 20110218, end: 20110218

REACTIONS (2)
  - OVERDOSE [None]
  - NO ADVERSE EVENT [None]
